FAERS Safety Report 4324250-8 (Version None)
Quarter: 2004Q1

REPORT INFORMATION
  Report Type: 
  Country: None (occurrence: None)
  Receive Date: 20040326
  Receipt Date: 20040114
  Transmission Date: 20041129
  Serious: No
  Sender: FDA-Public Use
  Company Number: US-GLAXOSMITHKLINE-A0493293A

PATIENT
  Age: 59 Year
  Sex: Male

DRUGS (2)
  1. ADVAIR DISKUS 100/50 [Suspect]
     Dosage: 1MCG TWICE PER DAY
     Route: 055
  2. SEREVENT [Suspect]
     Dosage: 1MCG TWICE PER DAY
     Route: 055
     Dates: start: 20040114

REACTIONS (1)
  - TONGUE COATED [None]
